FAERS Safety Report 7003194-7 (Version None)
Quarter: 2010Q3

REPORT INFORMATION
  Report Type: 
  Country: None (occurrence: None)
  Receive Date: 20100920
  Receipt Date: 20100326
  Transmission Date: 20110219
  Serious: No
  Sender: FDA-Public Use
  Company Number: US-ASTRAZENECA-2010SE13538

PATIENT
  Age: 42 Year
  Sex: Male
  Weight: 95.3 kg

DRUGS (2)
  1. SEROQUEL [Suspect]
     Indication: BIPOLAR DISORDER
     Dosage: MORNING 450 MG, 300 MG DAILY, 450 MG AT NIGHT
     Route: 048
     Dates: start: 20090101, end: 20100315
  2. SEROQUEL [Suspect]
     Indication: MAJOR DEPRESSION
     Dosage: MORNING 450 MG, 300 MG DAILY, 450 MG AT NIGHT
     Route: 048
     Dates: start: 20090101, end: 20100315

REACTIONS (4)
  - DEPRESSION [None]
  - DRUG DOSE OMISSION [None]
  - HEAD INJURY [None]
  - TACHYPHRENIA [None]
